FAERS Safety Report 23673081 (Version 2)
Quarter: 2024Q2

REPORT INFORMATION
  Report Type: Spontaneous
  Country: FR (occurrence: FR)
  Receive Date: 20240326
  Receipt Date: 20240404
  Transmission Date: 20240716
  Serious: Yes (Life-Threatening, Hospitalization, Other)
  Sender: FDA-Public Use
  Company Number: FR-SUNPHARMA-2024RR-438237AA

PATIENT
  Age: 69 Year
  Sex: Female
  Weight: 77 kg

DRUGS (9)
  1. VALACYCLOVIR [Suspect]
     Active Substance: VALACYCLOVIR HYDROCHLORIDE
     Indication: Prophylaxis
     Dosage: 1000 MILLIGRAM, DAILY
     Route: 048
     Dates: start: 20231129
  2. CEFTRIAXONE [Suspect]
     Active Substance: CEFTRIAXONE\CEFTRIAXONE SODIUM
     Indication: Infection
     Dosage: 2 GRAM, TOTAL 1
     Route: 040
     Dates: start: 20231203, end: 20231203
  3. ACETAMINOPHEN [Suspect]
     Active Substance: ACETAMINOPHEN
     Indication: Pain
     Dosage: 1000 MILLIGRAM, 1DOSE/ASNECESSA
     Route: 048
     Dates: start: 20231203
  4. ALLOPURINOL [Suspect]
     Active Substance: ALLOPURINOL
     Indication: Prophylaxis
     Dosage: 300 MILLIGRAM, DAILY
     Route: 048
     Dates: start: 20231127
  5. VYXEOS [Suspect]
     Active Substance: CYTARABINE\DAUNORUBICIN
     Indication: Acute myeloid leukaemia
     Dosage: 82 MILLIGRAM, J1-J3-J5
     Route: 040
     Dates: start: 20231129, end: 20231203
  6. METOCLOPRAMIDE [Suspect]
     Active Substance: METOCLOPRAMIDE
     Indication: Nausea
     Dosage: 60 MILLIGRAM, DAILY
     Route: 040
     Dates: start: 20231203
  7. POSACONAZOLE [Suspect]
     Active Substance: POSACONAZOLE
     Indication: Prophylaxis
     Dosage: 300 MILLIGRAM, DAILY
     Route: 048
     Dates: start: 20231128, end: 20231206
  8. ONDANSETRON [Suspect]
     Active Substance: ONDANSETRON
     Indication: Nausea
     Dosage: 16 MILLIGRAM, DAILY
     Route: 040
     Dates: start: 20231129
  9. AMIKACIN [Suspect]
     Active Substance: AMIKACIN
     Indication: Infection
     Dosage: 1095 MILLIGRAM, TOTAL 1
     Route: 040
     Dates: start: 20231203, end: 20231203

REACTIONS (3)
  - Septic shock [Recovering/Resolving]
  - Acute pulmonary oedema [Recovered/Resolved]
  - Acute respiratory distress syndrome [Not Recovered/Not Resolved]

NARRATIVE: CASE EVENT DATE: 20231204
